FAERS Safety Report 8484985-2 (Version None)
Quarter: 2012Q3

REPORT INFORMATION
  Report Type: 
  Country: None (occurrence: None)
  Receive Date: 20120703
  Receipt Date: 20120628
  Transmission Date: 20120928
  Serious: Yes (Disabling, Other)
  Sender: FDA-Public Use
  Company Number: JP-PFIZER INC-2012058296

PATIENT
  Age: 87 Year
  Sex: Male

DRUGS (9)
  1. SOLETON [Suspect]
     Dosage: UNK
     Route: 048
  2. DOXAZOSIN MESYLATE [Suspect]
     Dosage: UNK
     Route: 048
  3. MUCOSTA [Suspect]
     Dosage: UNK
     Route: 048
  4. ADALAT [Suspect]
     Dosage: UNK
     Route: 048
  5. LASIX [Suspect]
     Dosage: UNK
     Route: 048
  6. TENORMIN [Suspect]
     Dosage: 25 MG, UNK
     Route: 048
  7. ROCALTROL [Suspect]
     Dosage: UNK
     Route: 048
  8. SPELEAR [Suspect]
     Dosage: UNK
     Route: 048
  9. ALDACTONE [Suspect]
     Dosage: UNK
     Route: 048

REACTIONS (1)
  - LUNG DISORDER [None]
